FAERS Safety Report 6939577-0 (Version None)
Quarter: 2010Q3

REPORT INFORMATION
  Report Type: 
  Country: None (occurrence: None)
  Receive Date: 20100820
  Receipt Date: 20100804
  Transmission Date: 20110219
  Serious: Yes (Other)
  Sender: FDA-Public Use
  Company Number: 2010003343

PATIENT
  Age: 77 Year
  Sex: Male

DRUGS (12)
  1. ERLOTINIB (ERLOTINIB) (ERLOTINIB) [Suspect]
     Indication: HEPATIC NEOPLASM MALIGNANT
     Dosage: 150 MG , QD, ORAL; 100 MG, QD, ORAL
     Route: 048
     Dates: start: 20100627, end: 20100706
  2. ERLOTINIB (ERLOTINIB) (ERLOTINIB) [Suspect]
     Indication: HEPATIC NEOPLASM MALIGNANT
     Dosage: 150 MG , QD, ORAL; 100 MG, QD, ORAL
     Route: 048
     Dates: start: 20100715, end: 20100801
  3. SORAFENIB [Suspect]
     Indication: HEPATIC NEOPLASM MALIGNANT
     Dosage: 800 MG, QD, ORAL; 800 MG, QD, ORAL
     Route: 048
     Dates: start: 20100627, end: 20100706
  4. SORAFENIB [Suspect]
     Indication: HEPATIC NEOPLASM MALIGNANT
     Dosage: 800 MG, QD, ORAL; 800 MG, QD, ORAL
     Route: 048
     Dates: start: 20100715, end: 20100801
  5. IKAPRESS (VERAPAMIL HYDROCHLORIDE) [Concomitant]
  6. TAMSULOSIN HCL [Concomitant]
  7. FOLIC ACID [Concomitant]
  8. VITAMIN D [Concomitant]
  9. CALCIUM (CALCIUM) [Concomitant]
  10. INSPRA [Concomitant]
  11. ASPIRIN [Concomitant]
  12. LEVOTHROXINE SODIUM (LEVOTHYROXINE) [Concomitant]

REACTIONS (2)
  - PYREXIA [None]
  - UVEITIS [None]
